FAERS Safety Report 8889375 (Version 1)
Quarter: 2012Q4

REPORT INFORMATION
  Report Type: Spontaneous
  Country: US (occurrence: None)
  Receive Date: 20121101
  Receipt Date: 20121101
  Transmission Date: 20130627
  Serious: No
  Sender: FDA-Public Use
  Company Number: None

PATIENT

DRUGS (1)
  1. CHROMIUM [Suspect]

REACTIONS (5)
  - Malaise [None]
  - Gastrointestinal disorder [None]
  - Arthralgia [None]
  - Breast pain [None]
  - Breast swelling [None]
